FAERS Safety Report 7251741-2 (Version None)
Quarter: 2011Q1

REPORT INFORMATION
  Report Type: 
  Country: None (occurrence: None)
  Receive Date: 20110128
  Receipt Date: 20110125
  Transmission Date: 20110831
  Serious: Yes (Other)
  Sender: FDA-Public Use
  Company Number: DE-MERCK-1101DEU00102

PATIENT
  Sex: Female

DRUGS (4)
  1. ISENTRESS [Suspect]
     Indication: HIV INFECTION
     Route: 048
     Dates: start: 20100929, end: 20101004
  2. RITONAVIR [Concomitant]
     Indication: HIV INFECTION
     Route: 065
  3. ANTIVIRAL (UNSPECIFIED) [Concomitant]
     Indication: HIV INFECTION
     Route: 065
  4. ISENTRESS [Suspect]
     Indication: CD4 LYMPHOCYTES DECREASED
     Route: 048
     Dates: start: 20100929, end: 20101004

REACTIONS (2)
  - ADVERSE EVENT [None]
  - DRUG EXPOSURE DURING PREGNANCY [None]
